FAERS Safety Report 5536246-9 (Version None)
Quarter: 2007Q4

REPORT INFORMATION
  Report Type: 
  Country: None (occurrence: None)
  Receive Date: 20071206
  Receipt Date: 20071203
  Transmission Date: 20080405
  Serious: Yes (Other)
  Sender: FDA-Public Use
  Company Number: US-ROXANE LABORATORIES, INC-2007-DE-07093GD

PATIENT
  Age: 82 Year
  Sex: Female

DRUGS (10)
  1. MORPHINE [Suspect]
     Indication: PROCEDURAL PAIN
     Dosage: 1 MG BOLUS, LOCKOUT INTERVAL OF 6 MIN, 4-HOUR LIMIT OF 30 MG
     Route: 042
  2. FENTANYL [Suspect]
     Indication: INDUCTION OF ANAESTHESIA
  3. BUPIVACAINE [Suspect]
     Indication: PROCEDURAL PAIN
     Dosage: BOLUS OF 20 CC OF 0.25 % IN 5 CC INCREMENTS FOLLOWED BY INFUSION OF 0.125 % AT 10 CC PER HOUR FOR 36
  4. MIDAZOLAM HCL [Concomitant]
  5. LIDOCAINE W/ EPINEPHRINE [Concomitant]
     Dosage: 3 CC OF 2 % LIDOCAINE WITH EPINEPHRINE 1:200000
  6. PROPOFOL [Concomitant]
     Indication: INDUCTION OF ANAESTHESIA
     Dosage: 2 MG/KG - 3 MG/KG
  7. ISOFLURANE [Concomitant]
     Indication: MAINTENANCE OF ANAESTHESIA
  8. NITROUS OXIDE [Concomitant]
     Indication: MAINTENANCE OF ANAESTHESIA
  9. OXYGEN [Concomitant]
     Indication: MAINTENANCE OF ANAESTHESIA
  10. WARFARIN SODIUM [Concomitant]
     Indication: ANTICOAGULANT THERAPY

REACTIONS (1)
  - MUSCULAR WEAKNESS [None]
